FAERS Safety Report 11702876 (Version 1)
Quarter: 2015Q4

REPORT INFORMATION
  Report Type: Spontaneous
  Country: US (occurrence: US)
  Receive Date: 20151105
  Receipt Date: 20151105
  Transmission Date: 20160304
  Serious: No
  Sender: FDA-Public Use
  Company Number: US-GILEAD-2015-0180516

PATIENT
  Sex: Male

DRUGS (3)
  1. CURCUMA LONGA [Concomitant]
     Active Substance: TURMERIC
     Indication: PROSTATE CANCER
  2. LAETRILE [Concomitant]
     Active Substance: AMYGDALIN
     Indication: PROSTATE CANCER
  3. HARVONI [Suspect]
     Active Substance: LEDIPASVIR\SOFOSBUVIR
     Indication: PRODUCT USED FOR UNKNOWN INDICATION
     Dosage: UNK
     Route: 065
     Dates: start: 20151101

REACTIONS (1)
  - Bowel movement irregularity [Unknown]
